FAERS Safety Report 6754113-X (Version None)
Quarter: 2010Q2

REPORT INFORMATION
  Report Type: 
  Country: None (occurrence: None)
  Receive Date: 20100601
  Receipt Date: 20100517
  Transmission Date: 20101027
  Serious: Yes (Other)
  Sender: FDA-Public Use
  Company Number: 1000014091

PATIENT
  Age: 46 Year
  Sex: Male

DRUGS (12)
  1. ESCITALOPRAM [Suspect]
     Indication: ANXIETY
     Dosage: ORAL
     Route: 048
     Dates: start: 20071218, end: 20080117
  2. ESCITALOPRAM [Suspect]
     Indication: PANIC DISORDER
     Dosage: ORAL
     Route: 048
     Dates: start: 20071218, end: 20080117
  3. ESCITALOPRAM [Suspect]
     Indication: ANXIETY
     Dosage: 20 MG (20 MG,1 IN 1 D),ORAL ; (1 IN 1 D),ORAL ; 5 MG (5 MG,1 IN 1 D),ORAL
     Route: 048
     Dates: start: 20080118, end: 20080101
  4. ESCITALOPRAM [Suspect]
     Indication: PANIC DISORDER
     Dosage: 20 MG (20 MG,1 IN 1 D),ORAL ; (1 IN 1 D),ORAL ; 5 MG (5 MG,1 IN 1 D),ORAL
     Route: 048
     Dates: start: 20080118, end: 20080101
  5. ESCITALOPRAM [Suspect]
     Indication: ANXIETY
     Dosage: 20 MG (20 MG,1 IN 1 D),ORAL ; (1 IN 1 D),ORAL ; 5 MG (5 MG,1 IN 1 D),ORAL
     Route: 048
     Dates: start: 20080101, end: 20080701
  6. ESCITALOPRAM [Suspect]
     Indication: PANIC DISORDER
     Dosage: 20 MG (20 MG,1 IN 1 D),ORAL ; (1 IN 1 D),ORAL ; 5 MG (5 MG,1 IN 1 D),ORAL
     Route: 048
     Dates: start: 20080101, end: 20080701
  7. ESCITALOPRAM [Suspect]
     Indication: ANXIETY
     Dosage: 20 MG (20 MG,1 IN 1 D),ORAL ; (1 IN 1 D),ORAL ; 5 MG (5 MG,1 IN 1 D),ORAL
     Route: 048
     Dates: start: 20080701, end: 20080722
  8. ESCITALOPRAM [Suspect]
     Indication: PANIC DISORDER
     Dosage: 20 MG (20 MG,1 IN 1 D),ORAL ; (1 IN 1 D),ORAL ; 5 MG (5 MG,1 IN 1 D),ORAL
     Route: 048
     Dates: start: 20080701, end: 20080722
  9. RINEXIN [Suspect]
     Dosage: 50 MG (50 MG,1 IN 1 D),ORAL
     Route: 048
     Dates: start: 20071105, end: 20071101
  10. CHAMPIX [Suspect]
     Indication: NICOTINE DEPENDENCE
     Dosage: 0.5 MG (0.5 MG,1 IN 1 D),ORAL
     Route: 048
     Dates: start: 20070702, end: 20070704
  11. AMOXIL [Suspect]
     Indication: SINUSITIS
     Dosage: ORAL
     Route: 048
     Dates: start: 20071105, end: 20071109
  12. OXAZEPAM [Concomitant]

REACTIONS (14)
  - ANOSMIA [None]
  - ANXIETY [None]
  - DEPRESSION [None]
  - HEPATIC STEATOSIS [None]
  - HYPERSENSITIVITY [None]
  - IMPAIRED WORK ABILITY [None]
  - INFLUENZA [None]
  - LOWER RESPIRATORY TRACT INFECTION [None]
  - MEMORY IMPAIRMENT [None]
  - OEDEMA PERIPHERAL [None]
  - SWELLING FACE [None]
  - TINNITUS [None]
  - UPPER RESPIRATORY TRACT INFECTION [None]
  - WEIGHT INCREASED [None]
